FAERS Safety Report 6531586-9 (Version None)
Quarter: 2010Q1

REPORT INFORMATION
  Report Type: 
  Country: None (occurrence: None)
  Receive Date: 20100107
  Receipt Date: 20100107
  Transmission Date: 20100710
  Serious: Yes (Hospitalization)
  Sender: FDA-Public Use
  Company Number: None

PATIENT
  Age: 61 Year
  Sex: Male

DRUGS (1)
  1. NORTRIPTYLINE HCL [Suspect]
     Dosage: 10 MG HS PO
     Route: 048
     Dates: start: 20091107

REACTIONS (1)
  - SYNCOPE [None]
